FAERS Safety Report 12310116 (Version 2)
Quarter: 2016Q3

REPORT INFORMATION
  Report Type: Spontaneous
  Country: FR (occurrence: FR)
  Receive Date: 20160427
  Receipt Date: 20160930
  Transmission Date: 20161109
  Serious: Yes (Disabling)
  Sender: FDA-Public Use
  Company Number: FR-ASTRAZENECA-2016SE44057

PATIENT
  Age: 51 Year
  Sex: Female
  Weight: 90 kg

DRUGS (5)
  1. BYDUREON [Suspect]
     Active Substance: EXENATIDE
     Indication: TYPE 2 DIABETES MELLITUS
     Route: 065
     Dates: start: 20150825, end: 201606
  2. APROVEL [Concomitant]
     Active Substance: IRBESARTAN
  3. LERCAN [Concomitant]
     Active Substance: LERCANIDIPINE
  4. LIPANTHYL [Concomitant]
     Active Substance: FENOFIBRATE
  5. DIAMICRON [Concomitant]
     Active Substance: GLICLAZIDE
     Indication: TYPE 2 DIABETES MELLITUS

REACTIONS (2)
  - Weight increased [Recovering/Resolving]
  - Hypothyroidism [Unknown]
